FAERS Safety Report 4380125-X (Version None)
Quarter: 2004Q2

REPORT INFORMATION
  Report Type: 
  Country: None (occurrence: None)
  Receive Date: 20040616
  Receipt Date: 20040614
  Transmission Date: 20050107
  Serious: Yes (Death)
  Sender: FDA-Public Use
  Company Number: 04-06-0844

PATIENT
  Age: 55 Year
  Sex: Male

DRUGS (5)
  1. FLUOXETINE USP CAPSULES  -  IPI [Suspect]
     Indication: DEPRESSION
     Dosage: 20-40 MG QD ORAL
     Route: 048
  2. LARGACTIL [Concomitant]
  3. AMITRIPTYLINE HCL [Concomitant]
  4. ZOPICLONE [Concomitant]
  5. CHLORPROMAZINE [Concomitant]

REACTIONS (4)
  - COMPLETED SUICIDE [None]
  - INJURY ASPHYXIATION [None]
  - MULTIPLE DRUG OVERDOSE INTENTIONAL [None]
  - SUDDEN DEATH [None]
